FAERS Safety Report 4748746-X (Version None)
Quarter: 2005Q3

REPORT INFORMATION
  Report Type: 
  Country: None (occurrence: None)
  Receive Date: 20050819
  Receipt Date: 20050620
  Transmission Date: 20060218
  Serious: Yes (Hospitalization)
  Sender: FDA-Public Use
  Company Number: JP-NOVOPROD-244942

PATIENT
  Age: 23 Year
  Sex: Female
  Weight: 83 kg

DRUGS (5)
  1. NORDITROPIN SIMPLEXX [Suspect]
     Indication: GROWTH HORMONE DEFICIENCY
     Dosage: 1 MG, QD
     Route: 058
     Dates: start: 20050107, end: 20050602
  2. NORDITROPIN SIMPLEXX [Suspect]
     Dosage: .6 MG, QD
     Dates: start: 20050608
  3. LEVOTHYROXINE [Concomitant]
     Dosage: 100 UG, QD
     Route: 048
     Dates: start: 20030521
  4. HYDROCORTISONE [Concomitant]
     Dosage: 30 MG, QD
     Route: 048
     Dates: start: 20030521
  5. DESMOPRESSIN ACETATE [Concomitant]
     Dosage: 1.25 UG, QD
     Route: 055
     Dates: start: 20030521

REACTIONS (5)
  - DIZZINESS [None]
  - EPISTAXIS [None]
  - MALAISE [None]
  - NAUSEA [None]
  - PYREXIA [None]
